FAERS Safety Report 7015474-X (Version None)
Quarter: 2010Q3

REPORT INFORMATION
  Report Type: 
  Country: None (occurrence: None)
  Receive Date: 20100927
  Receipt Date: 20100920
  Transmission Date: 20110219
  Serious: Yes (Death, Hospitalization)
  Sender: FDA-Public Use
  Company Number: US-US-EMD SERONO, INC.-7018174

PATIENT
  Sex: Male

DRUGS (3)
  1. REBIF [Suspect]
     Indication: MULTIPLE SCLEROSIS
     Route: 058
     Dates: start: 20060531, end: 20100201
  2. MIRAPEX [Concomitant]
     Indication: MUSCLE DISORDER
  3. TIZANIDINE HCL [Concomitant]

REACTIONS (9)
  - AORTIC ANEURYSM [None]
  - CARDIAC ARREST [None]
  - CYSTITIS [None]
  - FEELING ABNORMAL [None]
  - HEART RATE ABNORMAL [None]
  - MULTIPLE SCLEROSIS [None]
  - PNEUMONIA [None]
  - RESPIRATORY ARREST [None]
  - SEPSIS [None]
